FAERS Safety Report 9699762 (Version 1)
Quarter: 2013Q4

REPORT INFORMATION
  Report Type: Spontaneous
  Country: US (occurrence: US)
  Receive Date: 20131120
  Receipt Date: 20131120
  Transmission Date: 20140711
  Serious: Yes (Hospitalization, Other)
  Sender: FDA-Public Use
  Company Number: US-B.I. PHARMACEUTICALS,INC./RIDGEFIELD-2013-BI-37414BP

PATIENT
  Age: 86 Year
  Sex: Female

DRUGS (2)
  1. COMBIVENT [Suspect]
     Indication: ASTHMA
     Dosage: STRENGTH: 18 MCG / 103 MCG
     Route: 055
     Dates: start: 1997
  2. DUO NEBULIZER TREATMENT [Concomitant]
     Indication: ASTHMA
     Dosage: FORMULATION: INHALATION SOLUTION
     Route: 055
     Dates: start: 1997

REACTIONS (10)
  - Myocardial infarction [Recovered/Resolved with Sequelae]
  - Heart injury [Not Recovered/Not Resolved]
  - Atrial fibrillation [Recovered/Resolved]
  - Heart rate irregular [Not Recovered/Not Resolved]
  - Asthenia [Recovered/Resolved]
  - Generalised oedema [Recovered/Resolved]
  - Influenza [Recovered/Resolved]
  - Angina pectoris [Recovered/Resolved]
  - Pneumonia [Recovered/Resolved]
  - Off label use [Not Recovered/Not Resolved]
